FAERS Safety Report 16449156 (Version 2)
Quarter: 2019Q3

REPORT INFORMATION
  Report Type: Spontaneous
  Country: US (occurrence: US)
  Receive Date: 20190619
  Receipt Date: 20190705
  Transmission Date: 20191004
  Serious: No
  Sender: FDA-Public Use
  Company Number: US-GLAXOSMITHKLINE-US2019109667

PATIENT
  Age: 73 Year
  Sex: Male

DRUGS (2)
  1. NUCALA [Suspect]
     Active Substance: MEPOLIZUMAB
     Indication: PRODUCT USED FOR UNKNOWN INDICATION
     Dosage: 100 MG, UNK
     Route: 058
     Dates: start: 2018
  2. NUCALA [Suspect]
     Active Substance: MEPOLIZUMAB
     Dosage: 300 MG, UNK
     Route: 058
     Dates: start: 20190611

REACTIONS (4)
  - Rash [Unknown]
  - Underdose [Unknown]
  - Drug ineffective [Unknown]
  - Erythema [Unknown]

NARRATIVE: CASE EVENT DATE: 201906
